FAERS Safety Report 4332813-9 (Version None)
Quarter: 2004Q1

REPORT INFORMATION
  Report Type: 
  Country: None (occurrence: None)
  Receive Date: 20040330
  Receipt Date: 20040322
  Transmission Date: 20041129
  Serious: Yes (Hospitalization)
  Sender: FDA-Public Use
  Company Number: 2004-114022-NL

PATIENT
  Age: 53 Year
  Sex: Female

DRUGS (3)
  1. VECURONIUM BROMIDE [Suspect]
     Dosage: DF
     Route: 042
     Dates: start: 19930101
  2. THIOPENTAL SODIUM [Concomitant]
  3. FENTANYL CITRATE [Concomitant]

REACTIONS (2)
  - ANAESTHETIC COMPLICATION [None]
  - ANAPHYLACTIC SHOCK [None]
